FAERS Safety Report 13947956 (Version 2)
Quarter: 2020Q1

REPORT INFORMATION
  Report Type: Spontaneous
  Country: US (occurrence: US)
  Receive Date: 20170908
  Receipt Date: 20200213
  Transmission Date: 20200409
  Serious: Yes (Other)
  Sender: FDA-Public Use
  Company Number: US-PFIZER INC-2017386765

PATIENT
  Age: 77 Year
  Sex: Male

DRUGS (1)
  1. XELJANZ XR [Suspect]
     Active Substance: TOFACITINIB CITRATE
     Indication: RHEUMATOID ARTHRITIS
     Dosage: 11 MG, UNK

REACTIONS (7)
  - Arthralgia [Unknown]
  - Skin lesion [Unknown]
  - Musculoskeletal pain [Unknown]
  - Parkinson^s disease [Unknown]
  - Tremor [Unknown]
  - Cataract [Unknown]
  - Emotional disorder [Unknown]
